FAERS Safety Report 9817153 (Version 2)
Quarter: 2014Q3

REPORT INFORMATION
  Report Type: Spontaneous
  Country: US (occurrence: US)
  Receive Date: 20140114
  Receipt Date: 20140818
  Transmission Date: 20150326
  Serious: No
  Sender: FDA-Public Use
  Company Number: US-009507513-1401USA004194

PATIENT
  Sex: Female
  Weight: 122.45 kg

DRUGS (1)
  1. NUVARING [Suspect]
     Active Substance: ETHINYL ESTRADIOL\ETONOGESTREL
     Indication: CONTRACEPTION
     Dosage: UNK
     Dates: start: 201201, end: 201208

REACTIONS (9)
  - Varicose vein [Unknown]
  - Maternal exposure before pregnancy [Unknown]
  - Coagulopathy [Unknown]
  - Thrombophlebitis superficial [Unknown]
  - Phlebitis [Unknown]
  - Deep vein thrombosis [Unknown]
  - Thrombophlebitis superficial [Unknown]
  - Thrombophlebitis superficial [Unknown]
  - Hypercoagulation [Unknown]

NARRATIVE: CASE EVENT DATE: 2012
